FAERS Safety Report 7086866-8 (Version None)
Quarter: 2010Q4

REPORT INFORMATION
  Report Type: 
  Country: None (occurrence: None)
  Receive Date: 20101105
  Receipt Date: 20101007
  Transmission Date: 20110411
  Serious: Yes (Other)
  Sender: FDA-Public Use
  Company Number: ES-AMGEN-QUU444129

PATIENT

DRUGS (1)
  1. NPLATE [Suspect]

REACTIONS (2)
  - ASPIRATION BONE MARROW ABNORMAL [None]
  - LYMPHOMA [None]
